FAERS Safety Report 6660634-0 (Version None)
Quarter: 2010Q1

REPORT INFORMATION
  Report Type: 
  Country: None (occurrence: None)
  Receive Date: 20100331
  Receipt Date: 20100322
  Transmission Date: 20100710
  Serious: Yes (Death)
  Sender: FDA-Public Use
  Company Number: US-JNJFOC-20090603114

PATIENT
  Sex: Female
  Weight: 68.04 kg

DRUGS (15)
  1. FENTANYL-100 [Suspect]
     Indication: PAIN
     Route: 062
  2. FENTANYL-100 [Suspect]
     Route: 062
  3. TRAMADOL HCL [Suspect]
     Indication: DRUG USE FOR UNKNOWN INDICATION
  4. AMITRIPTYLINE [Suspect]
     Indication: DRUG USE FOR UNKNOWN INDICATION
     Dosage: 1/2 AT BEDTIME
     Route: 048
  5. CITALOPRAM HYDROBROMIDE [Suspect]
     Indication: DRUG USE FOR UNKNOWN INDICATION
     Route: 065
  6. MORPHINE [Suspect]
     Indication: DRUG USE FOR UNKNOWN INDICATION
     Route: 048
  7. TOPAMAX [Concomitant]
  8. NICOTINE [Concomitant]
     Indication: DRUG USE FOR UNKNOWN INDICATION
     Route: 065
  9. BUPROPION HCL [Concomitant]
  10. CYCLOBENZAPRINE [Concomitant]
  11. ATROPINE [Concomitant]
  12. LEXAPRO [Concomitant]
  13. CEPHALEXIN [Concomitant]
     Dosage: FOR 7DAYS
  14. TRAZODONE [Concomitant]
     Dosage: AT BEDTIME
  15. CLONAZEPAM [Concomitant]

REACTIONS (19)
  - ACCIDENTAL DEATH [None]
  - ANXIETY [None]
  - CONDITION AGGRAVATED [None]
  - CONTUSION [None]
  - DEPRESSED LEVEL OF CONSCIOUSNESS [None]
  - DEPRESSION [None]
  - DRUG INTOLERANCE [None]
  - DRUG TOXICITY [None]
  - HEADACHE [None]
  - MIGRAINE [None]
  - OESOPHAGEAL DISORDER [None]
  - OVERDOSE [None]
  - PNEUMONITIS [None]
  - PRODUCT QUALITY ISSUE [None]
  - PULMONARY CONGESTION [None]
  - RESPIRATORY ARREST [None]
  - RIB FRACTURE [None]
  - SOMNOLENCE [None]
  - UNRESPONSIVE TO STIMULI [None]
